FAERS Safety Report 8270200-1 (Version None)
Quarter: 2012Q2

REPORT INFORMATION
  Report Type: 
  Country: None (occurrence: None)
  Receive Date: 20120410
  Receipt Date: 20120405
  Transmission Date: 20120825
  Serious: Yes (Other)
  Sender: FDA-Public Use
  Company Number: FR-B.I. PHARMACEUTICALS,INC./RIDGEFIELD-2011-FF-00792FF

PATIENT
  Sex: Male

DRUGS (9)
  1. GENTAMICIN SULFATE [Suspect]
     Indication: STAPHYLOCOCCAL SEPSIS
     Dosage: 380 MG
     Route: 042
     Dates: start: 20101031, end: 20101101
  2. LASIX [Concomitant]
     Indication: CONGESTIVE CARDIOMYOPATHY
     Dosage: 40 MG
     Route: 048
     Dates: end: 20101105
  3. DIGOXIN [Concomitant]
     Indication: CONGESTIVE CARDIOMYOPATHY
     Dosage: 0.25 MG
     Route: 048
     Dates: end: 20101105
  4. MICARDIS [Suspect]
     Indication: CONGESTIVE CARDIOMYOPATHY
     Dosage: 80 MG
     Route: 048
     Dates: end: 20101105
  5. INSPRA [Suspect]
     Indication: CONGESTIVE CARDIOMYOPATHY
     Dosage: 25 MG
     Route: 048
     Dates: end: 20101111
  6. GENTAMICIN SULFATE [Suspect]
     Dosage: 450 MG
     Route: 042
     Dates: start: 20101102, end: 20101104
  7. VANCOCIN HYDROCHLORIDE [Suspect]
     Indication: STAPHYLOCOCCAL SEPSIS
     Dosage: 750 MG
     Route: 042
     Dates: start: 20101031, end: 20101101
  8. ALLOPURINOL [Suspect]
     Indication: GOUT
     Dosage: 200 MG
     Route: 048
     Dates: start: 20100731, end: 20101030
  9. BISOPROLOL FUMARATE [Concomitant]
     Indication: CONGESTIVE CARDIOMYOPATHY
     Dosage: 15 MG
     Route: 048

REACTIONS (2)
  - RENAL FAILURE ACUTE [None]
  - LEUKOCYTURIA [None]
